FAERS Safety Report 10210459 (Version 1)
Quarter: 2014Q2

REPORT INFORMATION
  Report Type: Spontaneous
  Country: US (occurrence: None)
  Receive Date: 20140529
  Receipt Date: 20140529
  Transmission Date: 20141212
  Serious: Yes (Other)
  Sender: FDA-Public Use
  Company Number: None

PATIENT
  Age: 44 Year
  Sex: Female
  Weight: 106.4 kg

DRUGS (1)
  1. HUMIRA 40MG/0.8ML PEN [Suspect]
     Indication: RHEUMATOID ARTHRITIS
     Dosage: 40MG, EVERY OTHER WEEK, SC
     Route: 058
     Dates: start: 20140411, end: 20140528

REACTIONS (1)
  - Unevaluable event [None]
